FAERS Safety Report 23948688 (Version 1)
Quarter: 2024Q2

REPORT INFORMATION
  Report Type: Report from Study
  Country: US (occurrence: US)
  Receive Date: 20240607
  Receipt Date: 20240607
  Transmission Date: 20240716
  Serious: Yes (Hospitalization)
  Sender: FDA-Public Use
  Company Number: US-BoehringerIngelheim-2024-BI-032197

PATIENT
  Age: 80 Year
  Sex: Male

DRUGS (1)
  1. OFEV [Suspect]
     Active Substance: NINTEDANIB
     Indication: Idiopathic pulmonary fibrosis
     Route: 048
     Dates: start: 20220501

REACTIONS (3)
  - Oxygen saturation decreased [Recovered/Resolved]
  - Decreased appetite [Recovered/Resolved]
  - Pulmonary thrombosis [Recovering/Resolving]

NARRATIVE: CASE EVENT DATE: 20231201
